FAERS Safety Report 4374608-6 (Version None)
Quarter: 2004Q2

REPORT INFORMATION
  Report Type: 
  Country: None (occurrence: None)
  Receive Date: 20040609
  Receipt Date: 20040529
  Transmission Date: 20050107
  Serious: Yes (Hospitalization)
  Sender: FDA-Public Use
  Company Number: US-ROCHE-369715

PATIENT
  Age: 39 Year
  Sex: Female
  Weight: 68 kg

DRUGS (3)
  1. PEGASYS [Suspect]
     Indication: HEPATITIS C
     Dosage: ROUTE REPORTED AS INJECTION.
     Route: 050
     Dates: start: 20040515
  2. COPEGUS [Suspect]
     Indication: HEPATITIS C
     Route: 048
     Dates: start: 20040515
  3. DURAGESIC [Concomitant]
     Indication: PAIN
     Route: 048

REACTIONS (3)
  - BLOOD CALCIUM ABNORMAL [None]
  - NAUSEA [None]
  - VOMITING [None]
